FAERS Safety Report 12245937 (Version 1)
Quarter: 2016Q2

REPORT INFORMATION
  Report Type: Spontaneous
  Country: US (occurrence: US)
  Receive Date: 20160407
  Receipt Date: 20160407
  Transmission Date: 20160815
  Serious: No
  Sender: FDA-Public Use
  Company Number: US-ASTRAZENECA-2016SE35083

PATIENT
  Age: 25209 Day
  Sex: Male
  Weight: 94.3 kg

DRUGS (1)
  1. CRESTOR [Suspect]
     Active Substance: ROSUVASTATIN CALCIUM
     Indication: BLOOD CHOLESTEROL INCREASED
     Route: 048
     Dates: start: 201601

REACTIONS (12)
  - Feeding disorder [Unknown]
  - Chromaturia [Unknown]
  - Abdominal discomfort [Unknown]
  - Abdominal pain upper [Unknown]
  - Retching [Recovered/Resolved]
  - Ocular icterus [Unknown]
  - Weight decreased [Unknown]
  - Ultrasound scan [Unknown]
  - Liver disorder [Unknown]
  - Nausea [Recovered/Resolved]
  - Liver function test abnormal [Unknown]
  - Vomiting [Recovered/Resolved]

NARRATIVE: CASE EVENT DATE: 20160328
